FAERS Safety Report 5139054-6 (Version None)
Quarter: 2006Q4

REPORT INFORMATION
  Report Type: 
  Country: None (occurrence: None)
  Receive Date: 20061030
  Receipt Date: 20060613
  Transmission Date: 20070319
  Serious: No
  Sender: FDA-Public Use
  Company Number: US-GLAXOSMITHKLINE-A0608821A

PATIENT
  Age: 53 Year
  Sex: Female

DRUGS (6)
  1. ADVAIR HFA [Suspect]
     Route: 055
  2. XANAX [Concomitant]
  3. PAXIL [Concomitant]
  4. OXYCONTIN [Concomitant]
  5. OXYCODONE HCL [Concomitant]
  6. BENADRYL [Concomitant]

REACTIONS (1)
  - DIZZINESS [None]
